FAERS Safety Report 19301009 (Version 1)
Quarter: 2021Q2

REPORT INFORMATION
  Report Type: Report from Study
  Country: US (occurrence: US)
  Receive Date: 20210524
  Receipt Date: 20210524
  Transmission Date: 20210717
  Serious: Yes (Other)
  Sender: FDA-Public Use
  Company Number: US-GILEAD-2021-0525452

PATIENT
  Age: 57 Year
  Sex: Male

DRUGS (3)
  1. REMODULIN [Concomitant]
     Active Substance: TREPROSTINIL
     Dosage: 5 MG
  2. SILDENAFIL CITRATE. [Concomitant]
     Active Substance: SILDENAFIL CITRATE
  3. AMBRISENTAN [Suspect]
     Active Substance: AMBRISENTAN
     Indication: PULMONARY HYPERTENSION
     Dosage: 10 MG, QD
     Route: 065

REACTIONS (2)
  - Pulmonary arterial hypertension [Not Recovered/Not Resolved]
  - Administration site infection [Not Recovered/Not Resolved]
